FAERS Safety Report 12780792 (Version 2)
Quarter: 2017Q1

REPORT INFORMATION
  Report Type: Spontaneous
  Country: US (occurrence: US)
  Receive Date: 20160926
  Receipt Date: 20170303
  Transmission Date: 20170428
  Serious: No
  Sender: FDA-Public Use
  Company Number: US-TEVA-691215ACC

PATIENT
  Age: 20 Year
  Sex: Female
  Weight: 60.38 kg

DRUGS (1)
  1. PARAGARD T 380A [Suspect]
     Active Substance: COPPER
     Indication: CONTRACEPTION
     Dates: start: 20160808, end: 20160808

REACTIONS (4)
  - Muscle spasms [Unknown]
  - Device expulsion [Recovered/Resolved]
  - Pain [Recovered/Resolved]
  - Vaginal haemorrhage [Recovered/Resolved]

NARRATIVE: CASE EVENT DATE: 20160901
